FAERS Safety Report 6122405-3 (Version None)
Quarter: 2009Q1

REPORT INFORMATION
  Report Type: 
  Country: None (occurrence: None)
  Receive Date: 20090318
  Receipt Date: 20090114
  Transmission Date: 20090719
  Serious: No
  Sender: FDA-Public Use
  Company Number: US-ASTRAZENECA-2009UW01158

PATIENT
  Age: 69 Year
  Sex: Female
  Weight: 77.1 kg

DRUGS (8)
  1. SYMBICORT [Suspect]
     Indication: ASTHMA
     Dosage: 160/4.5 MCG TWO PUFFS ONCE OR TWICE A DAY AS NEEDED
     Route: 055
     Dates: start: 20070601, end: 20081201
  2. MAXZIDE [Concomitant]
  3. BENICAR [Concomitant]
  4. CRESTOR [Concomitant]
  5. POTASSIUM CHLORIDE [Concomitant]
  6. VITAMIN [Concomitant]
  7. PROTONIX [Concomitant]
  8. FLONASE [Concomitant]

REACTIONS (2)
  - CATARACT [None]
  - WEIGHT INCREASED [None]
